FAERS Safety Report 8021535-9 (Version None)
Quarter: 2011Q4

REPORT INFORMATION
  Report Type: 
  Country: None (occurrence: None)
  Receive Date: 20111229
  Receipt Date: 20111213
  Transmission Date: 20120403
  Serious: Yes (Other)
  Sender: FDA-Public Use
  Company Number: FK201103008

PATIENT
  Age: 52 Year
  Sex: Male

DRUGS (5)
  1. IFOSFAMIDE [Suspect]
     Indication: TESTIS CANCER
     Dosage: 1200 MG/M2
  2. BLEOMYCIN (BLEOMYCIN) (BLEOMYCIN) [Concomitant]
  3. CISPLATIN [Suspect]
     Indication: TESTIS CANCER
     Dosage: 20 MG/M2
  4. ETOPOSIDE [Suspect]
     Indication: TESTIS CANCER
     Dosage: 75 MG/M2
  5. MESNA [Suspect]
     Indication: TESTIS CANCER
     Dosage: 1200 MG/M2

REACTIONS (5)
  - RESPIRATORY DISTRESS [None]
  - RENAL TUBULAR NECROSIS [None]
  - TUMOUR LYSIS SYNDROME [None]
  - RENAL FAILURE ACUTE [None]
  - HAEMODIALYSIS [None]
